FAERS Safety Report 4738481-6 (Version None)
Quarter: 2005Q3

REPORT INFORMATION
  Report Type: 
  Country: None (occurrence: None)
  Receive Date: 20050808
  Receipt Date: 20050808
  Transmission Date: 20060218
  Serious: No
  Sender: FDA-Public Use
  Company Number: None

PATIENT
  Sex: Male

DRUGS (3)
  1. METOPROLOL [Suspect]
     Dosage: TABLET
  2. WARFARIN [Suspect]
     Dosage: TABLET
  3. VERAPAMIL [Suspect]
     Dosage: TROCHE/LOZENGE

REACTIONS (7)
  - CARDIAC FAILURE CONGESTIVE [None]
  - EXERCISE TOLERANCE DECREASED [None]
  - GASTROINTESTINAL HAEMORRHAGE [None]
  - HEART RATE DECREASED [None]
  - INTERNATIONAL NORMALISED RATIO INCREASED [None]
  - MEDICATION ERROR [None]
  - NODAL RHYTHM [None]
